FAERS Safety Report 8974967 (Version 1)
Quarter: 2012Q4

REPORT INFORMATION
  Report Type: Spontaneous
  Country: US (occurrence: None)
  Receive Date: 20121211
  Receipt Date: 20121211
  Transmission Date: 20130627
  Serious: Yes (Hospitalization)
  Sender: FDA-Public Use
  Company Number: 142800

PATIENT
  Age: 66 Year
  Sex: Male

DRUGS (1)
  1. ETOPOSIDE [Suspect]
     Indication: B-CELL  LYMPHOMA

REACTIONS (5)
  - Osteomyelitis [None]
  - Meningitis cryptococcal [None]
  - White blood cell count decreased [None]
  - Renal failure [None]
  - Cryptococcosis [None]
